FAERS Safety Report 6521355-8 (Version None)
Quarter: 2009Q4

REPORT INFORMATION
  Report Type: 
  Country: None (occurrence: None)
  Receive Date: 20091230
  Receipt Date: 20091218
  Transmission Date: 20100525
  Serious: Yes (Other)
  Sender: FDA-Public Use
  Company Number: CA-PFIZER INC-2009293309

PATIENT
  Age: 80 Year
  Sex: Male
  Weight: 68 kg

DRUGS (11)
  1. CYKLOKAPRON [Suspect]
     Indication: PROPHYLAXIS
     Dosage: 2 G, SINGLE
     Route: 042
     Dates: start: 20061201, end: 20061201
  2. ULTIVA [Suspect]
     Indication: GENERAL ANAESTHESIA
     Dosage: 10 UG, SINGLE
     Route: 042
     Dates: start: 20061201, end: 20061201
  3. ACETYLCYSTEINE [Concomitant]
     Dosage: 600 MG, 2X/DAY
     Route: 048
  4. ALLOPURINOL [Concomitant]
     Dosage: 200 MG, 2X/DAY
     Route: 048
  5. CEFAZOLIN [Concomitant]
     Dosage: 1 G, SINGLE
     Route: 042
  6. LIPITOR [Concomitant]
     Dosage: 40 MG, 1X/DAY
     Route: 048
  7. METOPROLOL [Concomitant]
     Dosage: 50 MG, 2X/DAY
     Route: 048
  8. NORVASC [Concomitant]
     Dosage: 5 MG, 2X/DAY
     Route: 048
  9. MIDAZOLAM HYDROCHLORIDE [Concomitant]
     Dosage: 2 MG, SINGLE
     Route: 042
  10. CLOPIDOGREL BISULFATE [Concomitant]
     Dosage: 75 MG, 1X/DAY
     Route: 048
  11. ACETYLSALICYLIC ACID ENTERIC COATED [Concomitant]
     Dosage: 81 MG, 1X/DAY
     Route: 048

REACTIONS (1)
  - CONVULSION [None]
